FAERS Safety Report 20249807 (Version 1)
Quarter: 2021Q4

REPORT INFORMATION
  Report Type: Spontaneous
  Country: NL (occurrence: NL)
  Receive Date: 20211229
  Receipt Date: 20211229
  Transmission Date: 20220303
  Serious: Yes (Other)
  Sender: FDA-Public Use
  Company Number: None

PATIENT
  Age: 49 Year
  Sex: Female
  Weight: 70 kg

DRUGS (4)
  1. TAMOXIFEN [Suspect]
     Active Substance: TAMOXIFEN
     Dosage: 1 DOSAGE FORMS DAILY; 1X PER DAY 1 PIECE,,TAMOXIFEN TABLET 40MG / BRAND NAME NOT SPECIFIED,THERAPY E
     Route: 065
     Dates: start: 20210801
  2. OXYCODONE [Suspect]
     Active Substance: OXYCODONE
     Dosage: AS NEEDED WITH A MAXIMUM OF 6 PER DAY,OXYCODONE TABLET 5MG / BRAND NAME NOT SPECIFIED,THERAPY END DA
     Route: 065
     Dates: start: 202107
  3. OXYCODONE [Suspect]
     Active Substance: OXYCODONE
     Dosage: 2 DOSAGE FORMS DAILY; 2X A DAY 1 PIECE,OXYCODONE TABLET MGA 5MG / BRAND NAME NOT SPECIFIED,THERAPY E
     Route: 065
     Dates: start: 202106
  4. PREGABALIN [Concomitant]
     Active Substance: PREGABALIN
     Dosage: 75 MG (MILLIGRAM),PREGABALINE CAPSULE 75MG / BRAND NAME NOT SPECIFIED,THERAPY START DATE:THERAPY END

REACTIONS (2)
  - Leiomyosarcoma [Recovered/Resolved]
  - Abdominal pain [Recovered/Resolved]

NARRATIVE: CASE EVENT DATE: 20210813
